FAERS Safety Report 18858333 (Version 1)
Quarter: 2021Q1

REPORT INFORMATION
  Report Type: Spontaneous
  Country: US (occurrence: US)
  Receive Date: 20210205
  Receipt Date: 20210205
  Transmission Date: 20210420
  Serious: No
  Sender: FDA-Public Use
  Company Number: None

PATIENT
  Age: 44 Year
  Sex: Female
  Weight: 49.5 kg

DRUGS (1)
  1. MARCAINE [Suspect]
     Active Substance: BUPIVACAINE HYDROCHLORIDE
     Indication: NERVE BLOCK
     Route: 058
     Dates: start: 20201214, end: 20201214

REACTIONS (3)
  - Oropharyngeal pain [None]
  - Pharyngeal hypoaesthesia [None]
  - Myalgia [None]

NARRATIVE: CASE EVENT DATE: 20201214
